FAERS Safety Report 10055548 (Version 1)
Quarter: 2014Q2

REPORT INFORMATION
  Report Type: Spontaneous
  Country: US (occurrence: None)
  Receive Date: 20140402
  Receipt Date: 20140402
  Transmission Date: 20141212
  Serious: No
  Sender: FDA-Public Use
  Company Number: None

PATIENT
  Age: 39 Year
  Sex: Female
  Weight: 61.24 kg

DRUGS (1)
  1. SVELTE POWER [Suspect]
     Dosage: ONCE DAILY

REACTIONS (4)
  - Anxiety [None]
  - Palpitations [None]
  - Nausea [None]
  - Vomiting [None]
